FAERS Safety Report 8064703-2 (Version None)
Quarter: 2012Q1

REPORT INFORMATION
  Report Type: 
  Country: None (occurrence: None)
  Receive Date: 20120123
  Receipt Date: 20120110
  Transmission Date: 20120608
  Serious: Yes (Other)
  Sender: FDA-Public Use
  Company Number: US-ELI_LILLY_AND_COMPANY-US201009008223

PATIENT
  Sex: Female

DRUGS (3)
  1. FORTEO [Suspect]
     Indication: OSTEOPOROSIS
     Dosage: UNK, UNKNOWN
     Route: 065
  2. FORTEO [Suspect]
     Dosage: 20 UG, QD
  3. FORTEO [Suspect]
     Dosage: 20 UG, QD

REACTIONS (21)
  - EYE OPERATION [None]
  - MOUTH INJURY [None]
  - JOINT SWELLING [None]
  - SPINAL FRACTURE [None]
  - BACK PAIN [None]
  - FALL [None]
  - SOMNOLENCE [None]
  - PAIN IN EXTREMITY [None]
  - CEMENTOPLASTY [None]
  - LOSS OF CONSCIOUSNESS [None]
  - INJECTION SITE ERYTHEMA [None]
  - DIZZINESS [None]
  - INJECTION SITE HAEMATOMA [None]
  - LIP INJURY [None]
  - LIP HAEMORRHAGE [None]
  - MYOCARDIAL INFARCTION [None]
  - JOINT INJURY [None]
  - HYPERSENSITIVITY [None]
  - DYSPHONIA [None]
  - ARTHRITIS [None]
  - INFLUENZA LIKE ILLNESS [None]
